FAERS Safety Report 20512708 (Version 1)
Quarter: 2022Q1

REPORT INFORMATION
  Report Type: Spontaneous
  Country: US (occurrence: None)
  Receive Date: 20220224
  Receipt Date: 20220224
  Transmission Date: 20220423
  Serious: Yes (Disabling)
  Sender: FDA-Public Use
  Company Number: None

PATIENT
  Age: 77 Year
  Sex: Male
  Weight: 76.5 kg

DRUGS (1)
  1. HYDROCHLOROTHIAZIDE [Suspect]
     Active Substance: HYDROCHLOROTHIAZIDE
     Indication: Hypertension
     Dosage: OTHER QUANTITY : 0.5 TABLET(S);?FREQUENCY : DAILY;?
     Route: 048
     Dates: start: 20190201

REACTIONS (14)
  - Pollakiuria [None]
  - Paraesthesia [None]
  - Paraesthesia [None]
  - Hypoaesthesia [None]
  - Paraesthesia [None]
  - Burning sensation [None]
  - Thirst [None]
  - Fatigue [None]
  - Back disorder [None]
  - Pruritus [None]
  - Diarrhoea [None]
  - Back pain [None]
  - Neck pain [None]
  - Dry eye [None]

NARRATIVE: CASE EVENT DATE: 20190201
